FAERS Safety Report 7709189-X (Version None)
Quarter: 2011Q3

REPORT INFORMATION
  Report Type: 
  Country: None (occurrence: None)
  Receive Date: 20110825
  Receipt Date: 20110819
  Transmission Date: 20111222
  Serious: Yes (Hospitalization)
  Sender: FDA-Public Use
  Company Number: FR-ROCHE-798141

PATIENT
  Sex: Male
  Weight: 88 kg

DRUGS (3)
  1. FENOFIBRATE [Concomitant]
  2. LEVOTHYROXINE SODIUM [Concomitant]
  3. BEVACIZUMAB [Suspect]
     Indication: NON-SMALL CELL LUNG CANCER
     Dosage: FORM: 15MG/KG
     Route: 042
     Dates: start: 20090710

REACTIONS (2)
  - NEPHROPATHY [None]
  - RENAL VESSEL DISORDER [None]
